FAERS Safety Report 17637176 (Version 1)
Quarter: 2020Q2

REPORT INFORMATION
  Report Type: Spontaneous
  Country: US (occurrence: US)
  Receive Date: 20200407
  Receipt Date: 20200407
  Transmission Date: 20200713
  Serious: No
  Sender: FDA-Public Use
  Company Number: None

PATIENT
  Age: 8 Year
  Sex: Male

DRUGS (13)
  1. PULMOZYME [Concomitant]
     Active Substance: DORNASE ALFA
  2. PREVACID [Concomitant]
     Active Substance: LANSOPRAZOLE
  3. FLONASE NS [Concomitant]
  4. CYPROHEPTADINE 4MG [Concomitant]
  5. SODIUM CHLORIDE 7% NEBS [Concomitant]
  6. ZYRTEC [Concomitant]
     Active Substance: CETIRIZINE HYDROCHLORIDE
  7. ALBUTEROL NEBS [Concomitant]
  8. SYMDEKO [Suspect]
     Active Substance: IVACAFTOR\TEZACAFTOR
     Indication: CYSTIC FIBROSIS
     Route: 048
  9. CREON [Concomitant]
     Active Substance: PANCRELIPASE AMYLASE\PANCRELIPASE LIPASE\PANCRELIPASE PROTEASE
  10. MIRALAX [Concomitant]
     Active Substance: POLYETHYLENE GLYCOL 3350
  11. RIZATRIPTAN 5MG [Concomitant]
     Active Substance: RIZATRIPTAN
  12. AMITRIPTYLINE 25MG [Concomitant]
     Active Substance: AMITRIPTYLINE
  13. MULTIVITAMIN [Concomitant]
     Active Substance: VITAMINS

REACTIONS (2)
  - Upper respiratory tract infection [None]
  - Cough [None]

NARRATIVE: CASE EVENT DATE: 20200407
